FAERS Safety Report 7524546-2 (Version None)
Quarter: 2011Q2

REPORT INFORMATION
  Report Type: 
  Country: None (occurrence: None)
  Receive Date: 20110601
  Receipt Date: 20110601
  Transmission Date: 20111010
  Serious: No
  Sender: FDA-Public Use
  Company Number: None

PATIENT
  Sex: Female

DRUGS (2)
  1. PEGASYS [Suspect]
     Indication: COMA
     Dosage: 180 MCG QW SQ
     Route: 058
     Dates: start: 20101229, end: 20110501
  2. RIBASPHERE [Suspect]
     Dosage: 400 MG BID PO
     Route: 048

REACTIONS (4)
  - WEIGHT DECREASED [None]
  - VOMITING [None]
  - MALAISE [None]
  - HYPOTHYROIDISM [None]
